FAERS Safety Report 15536555 (Version 2)
Quarter: 2019Q1

REPORT INFORMATION
  Report Type: Spontaneous
  Country: US (occurrence: US)
  Receive Date: 20181022
  Receipt Date: 20190130
  Transmission Date: 20190417
  Serious: Yes (Other)
  Sender: FDA-Public Use
  Company Number: US-JNJFOC-20181027884

PATIENT
  Age: 41 Year
  Sex: Male

DRUGS (2)
  1. INVOKANA [Suspect]
     Active Substance: CANAGLIFLOZIN
     Indication: TYPE 2 DIABETES MELLITUS
     Route: 048
     Dates: start: 20151216
  2. INVOKANA [Suspect]
     Active Substance: CANAGLIFLOZIN
     Indication: TYPE 2 DIABETES MELLITUS
     Route: 048
     Dates: start: 20151231

REACTIONS (6)
  - Cellulitis [Unknown]
  - Osteomyelitis [Unknown]
  - Toe amputation [Unknown]
  - Contusion [Unknown]
  - Skin ulcer [Unknown]
  - Abscess limb [Unknown]

NARRATIVE: CASE EVENT DATE: 20160401
